FAERS Safety Report 4855011-9 (Version None)
Quarter: 2005Q4

REPORT INFORMATION
  Report Type: 
  Country: None (occurrence: None)
  Receive Date: 20051214
  Receipt Date: 20051202
  Transmission Date: 20060501
  Serious: Yes (Hospitalization)
  Sender: FDA-Public Use
  Company Number: 2005JP002354

PATIENT
  Age: 66 Year
  Sex: Female

DRUGS (1)
  1. PROGRAF [Suspect]
     Indication: MYASTHENIA GRAVIS

REACTIONS (3)
  - ATRIOVENTRICULAR BLOCK [None]
  - DRUG INEFFECTIVE [None]
  - VOMITING [None]
